FAERS Safety Report 10571570 (Version 2)
Quarter: 2014Q4

REPORT INFORMATION
  Report Type: Spontaneous
  Country: FI (occurrence: FI)
  Receive Date: 20141107
  Receipt Date: 20141212
  Transmission Date: 20150529
  Serious: Yes (Death, Other)
  Sender: FDA-Public Use
  Company Number: FI-BAUSCH-BL-2014-008022

PATIENT
  Age: 0 Day

DRUGS (1)
  1. METRONIDAZOLE. [Suspect]
     Active Substance: METRONIDAZOLE
     Indication: MATERNAL EXPOSURE TIMING UNSPECIFIED
     Route: 064

REACTIONS (14)
  - Drug ineffective [Unknown]
  - Foetal exposure during pregnancy [Unknown]
  - C-reactive protein increased [Unknown]
  - Streptococcus test positive [Unknown]
  - Streptococcal infection [Fatal]
  - Septic shock [Fatal]
  - Hypotonia [Unknown]
  - Pallor [Unknown]
  - Hypotension [Unknown]
  - Asthenia [Unknown]
  - Tachycardia [Unknown]
  - Dyspnoea [Unknown]
  - Pulmonary hypertension [Unknown]
  - Pyrexia [Unknown]
